FAERS Safety Report 23065377 (Version 2)
Quarter: 2023Q4

REPORT INFORMATION
  Report Type: Spontaneous
  Country: US (occurrence: US)
  Receive Date: 20231013
  Receipt Date: 20231023
  Transmission Date: 20240110
  Serious: No
  Sender: FDA-Public Use
  Company Number: US-PFIZER INC-202300321337

PATIENT
  Age: 61 Year
  Sex: Male

DRUGS (1)
  1. SUTENT [Suspect]
     Active Substance: SUNITINIB MALATE
     Indication: Lung neoplasm malignant
     Dosage: 37.5 MG, CYCLIC (DAILY ON DAYS 1-28 OF EACH 42 CHEMOTHERAPY CYCLE)
     Route: 048

REACTIONS (2)
  - Off label use [Unknown]
  - Neoplasm progression [Unknown]
